FAERS Safety Report 10192730 (Version 1)
Quarter: 2014Q2

REPORT INFORMATION
  Report Type: Spontaneous
  Country: FI (occurrence: FI)
  Receive Date: 20140523
  Receipt Date: 20140523
  Transmission Date: 20141212
  Serious: Yes (Other)
  Sender: FDA-Public Use
  Company Number: FI-BRISTOL-MYERS SQUIBB COMPANY-20764619

PATIENT
  Sex: 0

DRUGS (4)
  1. BYDUREON [Suspect]
     Dates: start: 2013
  2. INSULIN [Suspect]
     Indication: TYPE 2 DIABETES MELLITUS
  3. METFORMIN HYDROCHLORIDE [Suspect]
     Indication: TYPE 2 DIABETES MELLITUS
  4. JANUVIA [Suspect]
     Indication: TYPE 2 DIABETES MELLITUS

REACTIONS (3)
  - Latent autoimmune diabetes in adults [Unknown]
  - Blood glucose fluctuation [Unknown]
  - Weight decreased [Unknown]
